FAERS Safety Report 7154541-7 (Version None)
Quarter: 2010Q4

REPORT INFORMATION
  Report Type: 
  Country: None (occurrence: None)
  Receive Date: 20101214
  Receipt Date: 20091104
  Transmission Date: 20110411
  Serious: No
  Sender: FDA-Public Use
  Company Number: US-AMGEN-KDL366328

PATIENT

DRUGS (7)
  1. ENBREL [Suspect]
     Indication: RHEUMATOID ARTHRITIS
     Dosage: 25 MG, 2 TIMES/WK
     Route: 058
     Dates: start: 20030502
  2. TRIAMTERENE AND HYDROCHLOROTHIAZIDE [Concomitant]
  3. ALENDRONATE SODIUM [Concomitant]
  4. SULINDAC [Concomitant]
  5. NORTRIPTYLINE [Concomitant]
  6. RANITIDINE HYDROCHLORIDE [Concomitant]
  7. UNSPECIFIED OPHTHALMIC PREPARATION [Concomitant]
     Dosage: UNK UNK, UNK

REACTIONS (6)
  - DYSPNOEA [None]
  - FATIGUE [None]
  - GAIT DISTURBANCE [None]
  - HYPERSENSITIVITY [None]
  - INSOMNIA [None]
  - MALAISE [None]
